FAERS Safety Report 9311738 (Version 3)
Quarter: 2013Q4

REPORT INFORMATION
  Report Type: Spontaneous
  Country: PT (occurrence: PT)
  Receive Date: 20130528
  Receipt Date: 20131220
  Transmission Date: 20140711
  Serious: Yes (Hospitalization, Other)
  Sender: FDA-Public Use
  Company Number: PT-PFIZER INC-2013158927

PATIENT
  Age: 32 Year
  Sex: Female

DRUGS (3)
  1. DOSTINEX [Suspect]
     Indication: HYPERPROLACTINAEMIA
     Dosage: 0.5 MG, UNK
     Route: 048
     Dates: end: 201304
  2. M-M-RVAXPRO [Suspect]
     Indication: IMMUNISATION
     Dosage: 1 DF, SINGLE
     Route: 030
     Dates: start: 20130214, end: 20130214
  3. D.T VAX VACCINE [Suspect]
     Indication: IMMUNISATION
     Dosage: 1 DF, SINGLE
     Route: 030
     Dates: start: 20130214, end: 20130214

REACTIONS (2)
  - Haemorrhage in pregnancy [Recovered/Resolved]
  - Amniorrhoea [Recovered/Resolved]
